FAERS Safety Report 10654272 (Version 1)
Quarter: 2014Q4

REPORT INFORMATION
  Report Type: Spontaneous
  Country: AU (occurrence: AU)
  Receive Date: 20141216
  Receipt Date: 20141216
  Transmission Date: 20150529
  Serious: Yes (Hospitalization, Other)
  Sender: FDA-Public Use
  Company Number: AU-AMGEN-AUSSP2014096760

PATIENT
  Sex: Female

DRUGS (1)
  1. PROLIA [Suspect]
     Active Substance: DENOSUMAB
     Indication: PRODUCT USED FOR UNKNOWN INDICATION
     Dosage: UNK
     Route: 065

REACTIONS (11)
  - Feeling hot [Unknown]
  - Pruritus [Recovered/Resolved]
  - Pain in extremity [Recovered/Resolved]
  - Malaise [Unknown]
  - Gait disturbance [Unknown]
  - Femur fracture [Unknown]
  - Visual impairment [Unknown]
  - Abdominal pain upper [Unknown]
  - Erythema [Unknown]
  - Ear discomfort [Unknown]
  - Back pain [Unknown]

NARRATIVE: CASE EVENT DATE: 2014
